FAERS Safety Report 13158188 (Version 2)
Quarter: 2017Q1

REPORT INFORMATION
  Report Type: Spontaneous
  Country: US (occurrence: US)
  Receive Date: 20170127
  Receipt Date: 20170309
  Transmission Date: 20170428
  Serious: No
  Sender: FDA-Public Use
  Company Number: US-ASTRAZENECA-2017SE05121

PATIENT
  Age: 58 Year
  Sex: Male
  Weight: 65.8 kg

DRUGS (1)
  1. TUDORZA PRESSAIR [Suspect]
     Active Substance: ACLIDINIUM BROMIDE
     Indication: CHRONIC OBSTRUCTIVE PULMONARY DISEASE
     Dosage: 400UG, 1 PUFF TWO TIMES A DAY
     Route: 055
     Dates: start: 2016

REACTIONS (7)
  - Middle ear effusion [Unknown]
  - Intentional product misuse [Unknown]
  - Incorrect dose administered [Unknown]
  - Ear discomfort [Unknown]
  - Sinusitis [Unknown]
  - Memory impairment [Unknown]
  - Hypoacusis [Unknown]

NARRATIVE: CASE EVENT DATE: 2016
